FAERS Safety Report 4896009-4 (Version None)
Quarter: 2006Q1

REPORT INFORMATION
  Report Type: 
  Country: None (occurrence: None)
  Receive Date: 20060126
  Receipt Date: 20060116
  Transmission Date: 20060701
  Serious: Yes (Hospitalization)
  Sender: FDA-Public Use
  Company Number: 200512972BWH

PATIENT
  Sex: Female

DRUGS (1)
  1. AVELOX [Suspect]
     Indication: INFECTION
     Dosage: 400 MG, ONCE, ORAL
     Route: 048
     Dates: start: 20031227

REACTIONS (3)
  - AMNESIA [None]
  - DYSPNOEA [None]
  - HYPERTENSION [None]
